FAERS Safety Report 24103525 (Version 1)
Quarter: 2024Q3

REPORT INFORMATION
  Report Type: Spontaneous
  Country: IR (occurrence: IR)
  Receive Date: 20240717
  Receipt Date: 20240717
  Transmission Date: 20241017
  Serious: Yes (Hospitalization)
  Sender: Carnegie Pharmaceuticals
  Company Number: IR-CARNEGIE-000014

PATIENT
  Age: 25 Year
  Sex: Female

DRUGS (1)
  1. LETROZOLE [Suspect]
     Active Substance: LETROZOLE
     Indication: Ovulation induction
     Route: 065

REACTIONS (2)
  - Ectopic pregnancy [Recovered/Resolved]
  - Ruptured ectopic pregnancy [Recovered/Resolved]
